FAERS Safety Report 8923194 (Version 1)
Quarter: 2012Q4

REPORT INFORMATION
  Report Type: Report from Study
  Country: DE (occurrence: DE)
  Receive Date: 20121123
  Receipt Date: 20121123
  Transmission Date: 20130627
  Serious: Yes (Other)
  Sender: FDA-Public Use
  Company Number: DE-PFIZER INC-2012290991

PATIENT
  Age: 44 Year
  Sex: Male
  Weight: 70 kg

DRUGS (2)
  1. CRIZOTINIB [Suspect]
     Indication: NON-SMALL CELL LUNG CANCER METASTATIC
     Dosage: 250 mg, 1x/day
     Route: 048
     Dates: start: 20110220
  2. ZOMETA [Concomitant]
     Indication: METASTASES TO BONE
     Dosage: 4 mg, UNK
     Route: 042
     Dates: start: 20120309

REACTIONS (1)
  - Thrombosis in device [Not Recovered/Not Resolved]
